FAERS Safety Report 16093474 (Version 1)
Quarter: 2019Q1

REPORT INFORMATION
  Report Type: Spontaneous
  Country: US (occurrence: US)
  Receive Date: 20190215
  Receipt Date: 20190215
  Transmission Date: 20190418
  Serious: No
  Sender: FDA-Public Use
  Company Number: None

PATIENT
  Age: 32 Year
  Sex: Female

DRUGS (2)
  1. HYDROXYPROGESTERONE CAPROATE. [Suspect]
     Active Substance: HYDROXYPROGESTERONE CAPROATE
     Indication: PROPHYLAXIS
     Route: 030
     Dates: start: 20190121
  2. HYDROXYPROGESTERONE CAPROATE. [Suspect]
     Active Substance: HYDROXYPROGESTERONE CAPROATE
     Indication: PREMATURE LABOUR
     Route: 030
     Dates: start: 20190121

REACTIONS (2)
  - Anxiety [None]
  - Mood swings [None]

NARRATIVE: CASE EVENT DATE: 20190214
